FAERS Safety Report 15281226 (Version 1)
Quarter: 2018Q3

REPORT INFORMATION
  Report Type: Report from Study
  Country: ES (occurrence: ES)
  Receive Date: 20180815
  Receipt Date: 20180815
  Transmission Date: 20181010
  Serious: Yes (Life-Threatening, Hospitalization)
  Sender: FDA-Public Use
  Company Number: ES-TEVA-2018-ES-939212

PATIENT
  Age: 72 Year
  Sex: Female
  Weight: 62 kg

DRUGS (16)
  1. AFLIBERCEPT [Suspect]
     Active Substance: AFLIBERCEPT
     Indication: RECTAL CANCER
     Dosage: EVERY 2 WEEKS?256
     Route: 041
     Dates: start: 20150817, end: 20150817
  2. OMEPRAZOLE. [Concomitant]
     Active Substance: OMEPRAZOLE
     Indication: PROPHYLAXIS AGAINST GASTROINTESTINAL ULCER
     Dosage: 20 MILLIGRAM DAILY;
     Route: 048
     Dates: start: 20151006
  3. FOLINIC ACID [Suspect]
     Active Substance: LEUCOVORIN
     Indication: RECTAL CANCER
     Dosage: EVERY 2 WEEKS?331
     Route: 041
     Dates: start: 20150817, end: 20150817
  4. FLUOROURACIL. [Suspect]
     Active Substance: FLUOROURACIL
     Indication: RECTAL CANCER
     Dosage: 662?EVERY 2 WEEKS
     Route: 040
     Dates: start: 20150928, end: 20150928
  5. FLUOROURACIL. [Suspect]
     Active Substance: FLUOROURACIL
     Indication: RECTAL CANCER
     Dosage: 662?EVERY 2 WEEKS
     Route: 041
     Dates: start: 20150817, end: 20150817
  6. CAPECITABINE. [Suspect]
     Active Substance: CAPECITABINE
     Indication: RECTAL CANCER
     Route: 065
  7. ACETYLSALICYLIC ACID [Concomitant]
     Active Substance: ASPIRIN
     Indication: TRANSIENT ISCHAEMIC ATTACK
     Dosage: 100 MILLIGRAM DAILY;
     Route: 048
     Dates: start: 20151006
  8. ACETYLSALICYLIC ACID [Concomitant]
     Active Substance: ASPIRIN
     Indication: ANTIPLATELET THERAPY
     Dosage: 100 MILLIGRAM DAILY;
     Route: 048
     Dates: start: 20151006
  9. OXALIPLATIN. [Suspect]
     Active Substance: OXALIPLATIN
     Indication: RECTAL CANCER
     Dosage: EVERY 2 WEEKS?141
     Route: 041
     Dates: start: 20150928, end: 20150928
  10. FLUOROURACIL. [Suspect]
     Active Substance: FLUOROURACIL
     Indication: RECTAL CANCER
     Dosage: 662?EVERY 2 WEEKS
     Route: 041
     Dates: start: 20150930, end: 20150930
  11. AFLIBERCEPT [Suspect]
     Active Substance: AFLIBERCEPT
     Indication: RECTAL CANCER
     Dosage: EVERY 2 WEEKS?256
     Route: 041
     Dates: start: 20150928, end: 20150928
  12. DEXAMETHASONE. [Concomitant]
     Active Substance: DEXAMETHASONE
     Indication: ASTHENIA
     Dosage: 1 MILLIGRAM DAILY;
     Route: 048
     Dates: start: 20150807
  13. OXALIPLATIN. [Suspect]
     Active Substance: OXALIPLATIN
     Indication: RECTAL CANCER
     Dosage: EVERY 2 WEEKS?141
     Route: 041
     Dates: start: 20150817, end: 20150817
  14. FOLINIC ACID [Suspect]
     Active Substance: LEUCOVORIN
     Indication: RECTAL CANCER
     Dosage: EVERY 2 WEEKS?331
     Route: 041
     Dates: start: 20150928, end: 20150928
  15. FLUOROURACIL. [Suspect]
     Active Substance: FLUOROURACIL
     Indication: RECTAL CANCER
     Dosage: INFUSION PUMP?EVERY 2 WEEKS
     Route: 042
     Dates: start: 20150817
  16. PAROXETINE. [Concomitant]
     Active Substance: PAROXETINE
     Indication: DEPRESSION
     Dosage: 20 MILLIGRAM DAILY;
     Route: 048
     Dates: start: 20150807

REACTIONS (1)
  - Hypertension [Recovered/Resolved]

NARRATIVE: CASE EVENT DATE: 20151006
